FAERS Safety Report 24313233 (Version 1)
Quarter: 2024Q3

REPORT INFORMATION
  Report Type: Spontaneous
  Country: US (occurrence: None)
  Receive Date: 20240912
  Receipt Date: 20240912
  Transmission Date: 20241016
  Serious: No
  Sender: Public
  Company Number: None

PATIENT
  Age: 73 Year
  Sex: Male
  Weight: 103.05 kg

DRUGS (6)
  1. LAGEVRIO [Suspect]
     Active Substance: MOLNUPIRAVIR
     Indication: COVID-19
     Dosage: OTHER QUANTITY : 4 CAPSULE(S);?FREQUENCY : TWICE A DAY;?
     Route: 048
     Dates: start: 20240909, end: 20240910
  2. DEVICE [Concomitant]
     Active Substance: DEVICE
  3. ELIQUIS [Concomitant]
     Active Substance: APIXABAN
  4. B12 [Concomitant]
  5. D [Concomitant]
  6. CALCIUM [Concomitant]
     Active Substance: CALCIUM

REACTIONS (2)
  - Nausea [None]
  - Inability to afford medication [None]

NARRATIVE: CASE EVENT DATE: 20240909
